FAERS Safety Report 10543724 (Version 2)
Quarter: 2014Q4

REPORT INFORMATION
  Report Type: Spontaneous
  Country: US (occurrence: None)
  Receive Date: 20141010
  Receipt Date: 20141205
  Transmission Date: 20150529
  Serious: No
  Sender: FDA-Public Use
  Company Number: 163-POMAL-14070498

PATIENT
  Age: 62 Year
  Sex: Male
  Weight: 95.26 kg

DRUGS (10)
  1. CALCIUM [Concomitant]
     Active Substance: CALCIUM
  2. POMALYST [Suspect]
     Active Substance: POMALIDOMIDE
     Indication: PLASMA CELL MYELOMA
     Dosage: 4MG, 21 IN 21D, PO
     Dates: start: 20140311, end: 2014
  3. SIMVASTATIN. [Concomitant]
     Active Substance: SIMVASTATIN
  4. VENLAFAXINE [Concomitant]
     Active Substance: VENLAFAXINE HYDROCHLORIDE
  5. ASPIRIN. [Concomitant]
     Active Substance: ASPIRIN
  6. MULTIVITAMINS [Concomitant]
     Active Substance: VITAMINS
  7. COMPLEX (BECOSYM FORTE) [Concomitant]
  8. CELEBREX [Concomitant]
     Active Substance: CELECOXIB
  9. NEXIUM [Concomitant]
     Active Substance: ESOMEPRAZOLE MAGNESIUM
  10. PARCOPA (SINEMET) [Concomitant]

REACTIONS (2)
  - Pollakiuria [None]
  - Hypotension [None]

NARRATIVE: CASE EVENT DATE: 2014
